FAERS Safety Report 8377343-2 (Version None)
Quarter: 2012Q2

REPORT INFORMATION
  Report Type: 
  Country: None (occurrence: None)
  Receive Date: 20120522
  Receipt Date: 20120519
  Transmission Date: 20120825
  Serious: Yes (Hospitalization)
  Sender: FDA-Public Use
  Company Number: IT-PFIZER INC-2012122007

PATIENT
  Age: 81 Year
  Sex: Male

DRUGS (3)
  1. SUTENT [Suspect]
     Indication: METASTASES TO LUNG
  2. SUTENT [Suspect]
     Indication: RENAL CELL CARCINOMA
     Dosage: 50 MG, CYCLIC FOUR WEEKS ON AND TWO WEEKS OFF
  3. ASPIRIN [Concomitant]
     Dosage: 1 DF, 1X/DAY

REACTIONS (3)
  - HYPERBILIRUBINAEMIA [None]
  - SKIN EXFOLIATION [None]
  - ASTHENIA [None]
